FAERS Safety Report 5074693-2 (Version None)
Quarter: 2006Q3

REPORT INFORMATION
  Report Type: 
  Country: None (occurrence: None)
  Receive Date: 20060803
  Receipt Date: 20060727
  Transmission Date: 20061208
  Serious: Yes (Other)
  Sender: FDA-Public Use
  Company Number: OSCN-PR-0607S-0212

PATIENT
  Sex: Male

DRUGS (2)
  1. OMNISCAN [Suspect]
     Indication: DRUG USE FOR UNKNOWN INDICATION
     Dosage: SINGLE DOSE, I.T.
     Route: 037
     Dates: start: 20040628, end: 20040628
  2. ISOVUE-M 300 [Suspect]
     Indication: LUMBAR PUNCTURE
     Dosage: 13 ML, SINGLE DOSE, I.T.
     Route: 037
     Dates: start: 20040628, end: 20040628

REACTIONS (2)
  - CONVULSION [None]
  - RHABDOMYOLYSIS [None]
